FAERS Safety Report 14834518 (Version 1)
Quarter: 2018Q2

REPORT INFORMATION
  Report Type: Spontaneous
  Country: US (occurrence: US)
  Receive Date: 20180413
  Receipt Date: 20180413
  Transmission Date: 20180711
  Serious: Yes (Hospitalization, Disabling, Other)
  Sender: FDA-Public Use
  Company Number: None

PATIENT
  Age: 27 Year
  Sex: Male

DRUGS (14)
  1. ARIPIPRAZOLE. [Suspect]
     Active Substance: ARIPIPRAZOLE
  2. ABILIFY [Concomitant]
     Active Substance: ARIPIPRAZOLE
  3. DEPAKOTE [Concomitant]
     Active Substance: DIVALPROEX SODIUM
  4. COENZYME Q-10 [Concomitant]
  5. LAMOTRIGINE. [Suspect]
     Active Substance: LAMOTRIGINE
  6. LOSARTON POTASSIUM [Concomitant]
  7. MULTIVITAMIN [Concomitant]
     Active Substance: VITAMINS
  8. BETA-CAROTENE [Concomitant]
  9. ANTIOXIDANTS [Concomitant]
  10. LAMICTAL [Concomitant]
     Active Substance: LAMOTRIGINE
  11. GLUCOSAMINE CHONDRITIN [Concomitant]
  12. VALPROIC ACID. [Suspect]
     Active Substance: VALPROIC ACID
  13. DULOXETINE. [Suspect]
     Active Substance: DULOXETINE
  14. CYMBALTA [Concomitant]
     Active Substance: DULOXETINE HYDROCHLORIDE

REACTIONS (11)
  - Sedation [None]
  - Hypertension [None]
  - Compulsive shopping [None]
  - Intentional self-injury [None]
  - Quality of life decreased [None]
  - Conduct disorder [None]
  - Weight increased [None]
  - Obesity [None]
  - Hypersomnia [None]
  - Suicidal ideation [None]
  - Anhedonia [None]

NARRATIVE: CASE EVENT DATE: 20130305
